FAERS Safety Report 21203134 (Version 1)
Quarter: 2022Q3

REPORT INFORMATION
  Report Type: Spontaneous
  Country: IL (occurrence: IL)
  Receive Date: 20220811
  Receipt Date: 20220811
  Transmission Date: 20221027
  Serious: Yes (Death, Hospitalization, Other)
  Sender: FDA-Public Use
  Company Number: IL-BoehringerIngelheim-2022-BI-186507

PATIENT
  Age: 81 Year
  Sex: Male

DRUGS (1)
  1. IDARUCIZUMAB [Suspect]
     Active Substance: IDARUCIZUMAB
     Indication: Procoagulant therapy

REACTIONS (4)
  - Enterococcal sepsis [Fatal]
  - B-cell lymphoma [Unknown]
  - Gastrointestinal lymphoma [Unknown]
  - General physical health deterioration [Unknown]
